FAERS Safety Report 25005631 (Version 2)
Quarter: 2025Q1

REPORT INFORMATION
  Report Type: Spontaneous
  Country: PT (occurrence: PT)
  Receive Date: 20250224
  Receipt Date: 20250305
  Transmission Date: 20250408
  Serious: No
  Sender: OTSUKA
  Company Number: PT-OTSUKA-2025_004195

PATIENT
  Age: 21 Year
  Sex: Female

DRUGS (2)
  1. ARIPIPRAZOLE [Suspect]
     Active Substance: ARIPIPRAZOLE
     Indication: Product used for unknown indication
     Dosage: 30 MG, QD
     Route: 065
     Dates: start: 202209
  2. AMISULPRIDE [Concomitant]
     Active Substance: AMISULPRIDE
     Indication: Product used for unknown indication
     Dosage: 400 MG, QD
     Route: 065
     Dates: start: 202209

REACTIONS (1)
  - Therapeutic product effect decreased [Unknown]
